FAERS Safety Report 5554989-8 (Version None)
Quarter: 2007Q4

REPORT INFORMATION
  Report Type: 
  Country: None (occurrence: None)
  Receive Date: 20071213
  Receipt Date: 20071205
  Transmission Date: 20080405
  Serious: Yes (Hospitalization)
  Sender: FDA-Public Use
  Company Number: US-ASTRAZENECA-2007UW19996

PATIENT
  Age: 9399 Day
  Sex: Male
  Weight: 65.9 kg

DRUGS (9)
  1. SEROQUEL [Suspect]
     Indication: AFFECTIVE DISORDER
     Route: 048
     Dates: start: 20070101
  2. SEROQUEL [Suspect]
     Indication: SLEEP DISORDER
     Route: 048
     Dates: start: 20070101
  3. SEROQUEL [Suspect]
     Indication: BIPOLAR I DISORDER
     Route: 048
     Dates: start: 20070101
  4. LITHIUM CARBONATE [Concomitant]
     Indication: BIPOLAR I DISORDER
     Route: 048
     Dates: start: 20070101
  5. EFFEXOR XR [Concomitant]
     Indication: DEPRESSION
     Route: 048
     Dates: start: 20070101
  6. LAMICTAL [Concomitant]
  7. PERCOCET [Concomitant]
  8. MOBIC [Concomitant]
  9. KLONOPIN [Concomitant]
     Indication: ANXIETY
     Route: 048
     Dates: start: 20070101

REACTIONS (4)
  - ANOREXIA [None]
  - ILL-DEFINED DISORDER [None]
  - SWELLING [None]
  - WEIGHT INCREASED [None]
